FAERS Safety Report 6680262-0 (Version None)
Quarter: 2010Q2

REPORT INFORMATION
  Report Type: 
  Country: None (occurrence: None)
  Receive Date: 20100413
  Receipt Date: 20100409
  Transmission Date: 20101027
  Serious: Yes (Hospitalization)
  Sender: FDA-Public Use
  Company Number: US-GILEAD-2010-0028342

PATIENT
  Sex: Female
  Weight: 117.59 kg

DRUGS (23)
  1. LETAIRIS [Suspect]
     Indication: PULMONARY ARTERIAL HYPERTENSION
     Route: 048
     Dates: start: 20100319
  2. WARFARIN SODIUM [Concomitant]
  3. ECOTRIN [Concomitant]
  4. FUROSEMIDE [Concomitant]
  5. METOLAZONE [Concomitant]
  6. CARDIZEM [Concomitant]
  7. METOPROLOL TARTRATE [Concomitant]
  8. AMIODARONE HCL [Concomitant]
  9. METOCLOPRAMIDE HYDROCHLORIDE [Concomitant]
  10. LIPITOR [Concomitant]
  11. LANTUS [Concomitant]
  12. NOVOLOG [Concomitant]
  13. PAROXETINE HCL [Concomitant]
  14. XANAX [Concomitant]
  15. FOSAMAX [Concomitant]
  16. LEVOTHYROXINE SODIUM [Concomitant]
  17. PROGRAF [Concomitant]
  18. PREDNISOLONE [Concomitant]
  19. MUCINEX [Concomitant]
  20. POTASSIUM CHLORIDE [Concomitant]
  21. CALCITRIOL [Concomitant]
  22. LOVAZA [Concomitant]
  23. VITAMIN D [Concomitant]

REACTIONS (1)
  - RENAL FAILURE ACUTE [None]
